FAERS Safety Report 5084980-X (Version None)
Quarter: 2006Q3

REPORT INFORMATION
  Report Type: 
  Country: None (occurrence: None)
  Receive Date: 20060814
  Receipt Date: 20060727
  Transmission Date: 20061208
  Serious: Yes (Hospitalization)
  Sender: FDA-Public Use
  Company Number: US200607005027

PATIENT
  Age: 24 Year
  Sex: Female

DRUGS (4)
  1. STRATTERA [Suspect]
     Indication: ATTENTION DEFICIT/HYPERACTIVITY DISORDER
     Dates: end: 20060727
  2. ORAL CONTRACEPTIVE NOS [Concomitant]
  3. COCAINE [Concomitant]
  4. MERIDIA [Concomitant]

REACTIONS (2)
  - GRANULOMATOUS LIVER DISEASE [None]
  - INFECTION [None]
